FAERS Safety Report 8152335 (Version 3)
Quarter: 2013Q2

REPORT INFORMATION
  Report Type: Spontaneous
  Country: US (occurrence: US)
  Receive Date: 20110922
  Receipt Date: 20130403
  Transmission Date: 20140414
  Serious: No
  Sender: FDA-Public Use
  Company Number: US-ASTRAZENECA-2011SE10462

PATIENT
  Age: 54 Year
  Sex: Female

DRUGS (1)
  1. SEROQUEL XR [Suspect]
     Route: 048

REACTIONS (10)
  - Insomnia [Unknown]
  - Road traffic accident [Unknown]
  - Injury [Unknown]
  - Thermal burn [Unknown]
  - Nerve injury [Unknown]
  - Pain [Unknown]
  - Tooth loss [Unknown]
  - Swelling face [Unknown]
  - Nightmare [Unknown]
  - Drug dose omission [Unknown]
